FAERS Safety Report 7287306-6 (Version None)
Quarter: 2011Q1

REPORT INFORMATION
  Report Type: 
  Country: None (occurrence: None)
  Receive Date: 20110211
  Receipt Date: 20110207
  Transmission Date: 20110831
  Serious: Yes (Death, Hospitalization)
  Sender: FDA-Public Use
  Company Number: US-CELGENEUS-163-21880-10123369

PATIENT
  Sex: Female
  Weight: 111 kg

DRUGS (27)
  1. DEXAMETHASONE [Suspect]
     Indication: MULTIPLE MYELOMA
     Route: 065
     Dates: start: 20100220
  2. ALLOPURINOL [Concomitant]
     Route: 048
  3. ACYCLOVIR [Concomitant]
     Route: 065
  4. BORTEZOMIB [Suspect]
     Indication: MULTIPLE MYELOMA
     Route: 065
     Dates: end: 20100924
  5. XALATAN [Concomitant]
     Route: 065
  6. METOPROLOL [Concomitant]
     Route: 048
  7. MORPHINE [Concomitant]
     Dosage: 15 MG 30 MG
     Route: 065
  8. SINGULAIR [Concomitant]
     Route: 048
  9. ZANTAC [Concomitant]
     Route: 065
  10. REVLIMID [Suspect]
     Route: 048
     Dates: start: 20101113, end: 20101203
  11. SENNA S [Concomitant]
     Dosage: 2
     Route: 065
  12. IBUPROFEN [Concomitant]
     Route: 065
  13. OSCAL [Concomitant]
     Route: 048
  14. DEXAMETHASONE [Suspect]
     Route: 065
     Dates: start: 20100403
  15. ASPIRIN [Concomitant]
     Route: 048
  16. ALBUTEROL SULFATE [Concomitant]
     Dosage: 90 MCG/ACTUATION
     Route: 055
  17. AMLODIPINE [Concomitant]
     Route: 048
  18. KLOR-CON M20 [Concomitant]
     Route: 048
  19. OXYCODONE HCL [Concomitant]
     Route: 048
  20. GLYBURIDE [Concomitant]
     Route: 048
  21. LORATADINE [Concomitant]
     Route: 048
  22. COMPAZINE [Concomitant]
     Route: 065
  23. MAGOXIDE [Concomitant]
     Route: 048
  24. MIRALAX [Concomitant]
     Dosage: 17
     Route: 065
  25. COLCHICINE [Concomitant]
     Route: 048
  26. REVLIMID [Suspect]
     Indication: MULTIPLE MYELOMA
     Route: 048
     Dates: start: 20100403
  27. ZOFRAN [Concomitant]
     Route: 048

REACTIONS (2)
  - MULTIPLE MYELOMA [None]
  - PAIN [None]
